FAERS Safety Report 4870227-3 (Version None)
Quarter: 2005Q4

REPORT INFORMATION
  Report Type: 
  Country: None (occurrence: None)
  Receive Date: 20051228
  Receipt Date: 20051215
  Transmission Date: 20060501
  Serious: Yes (Hospitalization)
  Sender: FDA-Public Use
  Company Number: 200512IM000830

PATIENT
  Age: 53 Year
  Sex: Male
  Weight: 95.2554 kg

DRUGS (3)
  1. INFERGEN [Suspect]
     Indication: HEPATITIS C
     Dosage: 15  UG, QD, SUBCUTANEOUS
     Route: 058
     Dates: start: 20050817
  2. RIBAVIRIN [Concomitant]
  3. SYNTHROID [Concomitant]

REACTIONS (3)
  - BACK INJURY [None]
  - PNEUMONIA [None]
  - URINARY TRACT INFECTION [None]
